FAERS Safety Report 13881425 (Version 1)
Quarter: 2017Q3

REPORT INFORMATION
  Report Type: Spontaneous
  Country: US (occurrence: US)
  Receive Date: 20170818
  Receipt Date: 20170818
  Transmission Date: 20171127
  Serious: No
  Sender: FDA-Public Use
  Company Number: US-PFIZER INC-2017355510

PATIENT
  Age: 81 Year
  Sex: Male

DRUGS (1)
  1. ALAVERT ALLERGY [Suspect]
     Active Substance: LORATADINE
     Dosage: 10 MG, DAILY

REACTIONS (7)
  - Musculoskeletal stiffness [Unknown]
  - Joint swelling [Unknown]
  - Exercise tolerance decreased [Unknown]
  - Weight bearing difficulty [Unknown]
  - Loss of personal independence in daily activities [Unknown]
  - Motor dysfunction [Unknown]
  - Arthralgia [Unknown]
